FAERS Safety Report 20648701 (Version 1)
Quarter: 2022Q1

REPORT INFORMATION
  Report Type: Other
  Country: CA (occurrence: None)
  Receive Date: 20220329
  Receipt Date: 20220329
  Transmission Date: 20220424
  Serious: Yes (Disabling, Other)
  Sender: FDA-Public Use
  Company Number: CA-Saptalis Pharmaceuticals,LLC-000206

PATIENT
  Age: 73 Year
  Sex: Male

DRUGS (16)
  1. KENALOG [Suspect]
     Active Substance: TRIAMCINOLONE ACETONIDE
     Indication: Acute febrile neutrophilic dermatosis
     Dosage: 40 MG OF SUBTENONS
  2. PREDNISONE [Suspect]
     Active Substance: PREDNISONE
     Indication: Acute febrile neutrophilic dermatosis
     Dosage: 60 MG DAILY
     Route: 048
  3. PREDNISOLONE [Suspect]
     Active Substance: PREDNISOLONE
     Indication: Acute febrile neutrophilic dermatosis
     Dosage: 1% FOUR TIMES DAILY TO THE LEFT EYE
     Route: 047
  4. OZURDEX [Suspect]
     Active Substance: DEXAMETHASONE
     Indication: Acute febrile neutrophilic dermatosis
     Route: 031
  5. DAPSONE [Concomitant]
     Active Substance: DAPSONE
     Indication: Acute febrile neutrophilic dermatosis
     Dosage: 150 MG DAILY
  6. INSULIN NOS [Concomitant]
     Active Substance: INSULIN NOS
     Indication: Product used for unknown indication
  7. TAMSULOISIN [Concomitant]
     Indication: Product used for unknown indication
  8. PANTOPRAZOLE [Concomitant]
     Active Substance: PANTOPRAZOLE
     Indication: Product used for unknown indication
  9. ROSUVASTATIN [Concomitant]
     Active Substance: ROSUVASTATIN
     Indication: Product used for unknown indication
  10. METOPROLOL [Concomitant]
     Active Substance: METOPROLOL
     Indication: Product used for unknown indication
  11. METFORMIN [Concomitant]
     Active Substance: METFORMIN HYDROCHLORIDE
     Indication: Product used for unknown indication
  12. PERINDOPRIL [Concomitant]
     Active Substance: PERINDOPRIL
     Indication: Product used for unknown indication
  13. VITAMIN D [Concomitant]
     Active Substance: VITAMIN D NOS
     Indication: Product used for unknown indication
  14. PREDNISONE [Suspect]
     Active Substance: PREDNISONE
     Indication: Acute febrile neutrophilic dermatosis
     Route: 048
  15. PREDNISONE [Suspect]
     Active Substance: PREDNISONE
     Indication: Acute febrile neutrophilic dermatosis
     Dosage: 50 MG DAILY
     Route: 048
  16. DAPSONE [Concomitant]
     Active Substance: DAPSONE
     Indication: Acute febrile neutrophilic dermatosis
     Dosage: 100 MG DAILY

REACTIONS (5)
  - Blindness [Unknown]
  - Disease progression [Unknown]
  - Therapy non-responder [Unknown]
  - Drug ineffective [Unknown]
  - Choroidal sclerosis [Unknown]
